FAERS Safety Report 24717856 (Version 1)
Quarter: 2024Q4

REPORT INFORMATION
  Report Type: Spontaneous
  Country: US (occurrence: US)
  Receive Date: 20241210
  Receipt Date: 20241210
  Transmission Date: 20250115
  Serious: Yes (Disabling)
  Sender: FRESENIUS KABI
  Company Number: US-FreseniusKabi-FK202418192

PATIENT
  Sex: Female

DRUGS (1)
  1. DIPRIVAN [Suspect]
     Active Substance: PROPOFOL
     Indication: Anaesthesia
     Dosage: FORM OF ADMINISTRATION: INJECTABLE EMULSION?DOSE: 150 MG ONCE, 50 MG ONCE
     Dates: start: 20241127, end: 20241127

REACTIONS (4)
  - Impaired driving ability [Not Recovered/Not Resolved]
  - Dizziness [Not Recovered/Not Resolved]
  - Headache [Not Recovered/Not Resolved]
  - Impaired work ability [Not Recovered/Not Resolved]
